FAERS Safety Report 7453718-0 (Version None)
Quarter: 2011Q2

REPORT INFORMATION
  Report Type: 
  Country: None (occurrence: None)
  Receive Date: 20110502
  Receipt Date: 20110111
  Transmission Date: 20111010
  Serious: No
  Sender: FDA-Public Use
  Company Number: US-ASTRAZENECA-2011SE02091

PATIENT
  Sex: Male

DRUGS (6)
  1. PRIMIDONE [Concomitant]
  2. FISH OIL [Concomitant]
  3. ADDITIONAL ANTIHYPERTENSIVE [Concomitant]
  4. ANXIOLYTIC [Concomitant]
  5. NEXIUM [Suspect]
     Indication: GASTROOESOPHAGEAL REFLUX DISEASE
     Route: 048
  6. MELATONIN [Concomitant]

REACTIONS (18)
  - REGURGITATION [None]
  - COUGH [None]
  - VISUAL IMPAIRMENT [None]
  - HIATUS HERNIA [None]
  - ABDOMINAL DISCOMFORT [None]
  - STRESS [None]
  - ORAL DISORDER [None]
  - IRRITABLE BOWEL SYNDROME [None]
  - DRUG DOSE OMISSION [None]
  - SLEEP DISORDER [None]
  - OBESITY [None]
  - CHOKING [None]
  - MEMORY IMPAIRMENT [None]
  - MENTAL DISORDER [None]
  - DYSPNOEA [None]
  - POLYURIA [None]
  - GASTROOESOPHAGEAL REFLUX DISEASE [None]
  - VOMITING [None]
